FAERS Safety Report 5602115-9 (Version None)
Quarter: 2008Q1

REPORT INFORMATION
  Report Type: 
  Country: None (occurrence: None)
  Receive Date: 20080125
  Receipt Date: 20080116
  Transmission Date: 20080703
  Serious: Yes (Hospitalization, Other)
  Sender: FDA-Public Use
  Company Number: PHHY2008JP00733

PATIENT
  Age: 72 Year
  Sex: Female

DRUGS (3)
  1. MAPROTILINE HYDROCHLORIDE [Suspect]
     Indication: DEPRESSION
     Route: 048
  2. HALOPERIDOL [Suspect]
     Indication: DEPRESSION
  3. CLOMIPRAMINE HYDROCHLORIDE [Suspect]
     Indication: DEPRESSION

REACTIONS (8)
  - BLOOD CREATINE PHOSPHOKINASE INCREASED [None]
  - LABILE BLOOD PRESSURE [None]
  - NAUSEA [None]
  - NEUROLEPTIC MALIGNANT SYNDROME [None]
  - PYREXIA [None]
  - RHABDOMYOLYSIS [None]
  - URINARY RETENTION [None]
  - VOMITING [None]
